FAERS Safety Report 6813917-5 (Version None)
Quarter: 2010Q3

REPORT INFORMATION
  Report Type: 
  Country: None (occurrence: None)
  Receive Date: 20100702
  Receipt Date: 20100618
  Transmission Date: 20110219
  Serious: Yes (Hospitalization)
  Sender: FDA-Public Use
  Company Number: GB-RANBAXY-2010RR-34418

PATIENT
  Age: 67 Year
  Sex: Female

DRUGS (2)
  1. FLUOXETINE [Suspect]
     Indication: DEPRESSION
     Dosage: 60 MG, UNK
  2. ONDANSETRON [Suspect]
     Indication: NAUSEA
     Dosage: 4 MG, BID

REACTIONS (3)
  - LONG QT SYNDROME [None]
  - STRESS CARDIOMYOPATHY [None]
  - TORSADE DE POINTES [None]
